FAERS Safety Report 23632122 (Version 2)
Quarter: 2024Q3

REPORT INFORMATION
  Report Type: Spontaneous
  Country: US (occurrence: US)
  Receive Date: 20240314
  Receipt Date: 20240930
  Transmission Date: 20241016
  Serious: No
  Sender: SANOFI AVENTIS
  Company Number: US-SA-SAC20240312000152

PATIENT
  Age: 66 Year
  Sex: Female
  Weight: 92.98 kg

DRUGS (3)
  1. DUPIXENT [Suspect]
     Active Substance: DUPILUMAB
     Indication: Illness
     Dosage: 300 MG, QOW
     Route: 058
     Dates: start: 2024
  2. ORENCIA [Concomitant]
     Active Substance: ABATACEPT
  3. ACTEMRA [Concomitant]
     Active Substance: TOCILIZUMAB

REACTIONS (2)
  - Illness [Unknown]
  - Pain [Unknown]

NARRATIVE: CASE EVENT DATE: 20240101
